FAERS Safety Report 9625697 (Version 2)
Quarter: 2013Q4

REPORT INFORMATION
  Report Type: Spontaneous
  Country: US (occurrence: US)
  Receive Date: 20131016
  Receipt Date: 20131105
  Transmission Date: 20140711
  Serious: Yes (Other)
  Sender: FDA-Public Use
  Company Number: US-JNJFOC-20131003879

PATIENT
  Age: 43 Year
  Sex: Male
  Weight: 90.72 kg

DRUGS (3)
  1. RISPERDAL CONSTA [Suspect]
     Indication: SCHIZOPHRENIA, UNDIFFERENTIATED TYPE
     Route: 030
     Dates: start: 201307, end: 20131005
  2. RISPERIDONE [Suspect]
     Indication: PRODUCT USED FOR UNKNOWN INDICATION
     Dosage: 8-10 MONTHS
     Route: 048
     Dates: start: 201307, end: 20131005
  3. DIVALPROEX [Concomitant]
     Indication: AFFECTIVE DISORDER
     Dosage: 8-10 MONTHS
     Route: 048
     Dates: start: 2012

REACTIONS (5)
  - Spinal fracture [Recovering/Resolving]
  - Road traffic accident [Unknown]
  - Loss of consciousness [Recovered/Resolved]
  - Back pain [Unknown]
  - Drug dose omission [Unknown]
